FAERS Safety Report 17621151 (Version 1)
Quarter: 2020Q2

REPORT INFORMATION
  Report Type: Spontaneous
  Country: GB (occurrence: GB)
  Receive Date: 20200403
  Receipt Date: 20200403
  Transmission Date: 20200713
  Serious: Yes (Other)
  Sender: FDA-Public Use
  Company Number: GB-TEVA-2020-GB-1218497

PATIENT
  Age: 2 Year
  Sex: Female
  Weight: 16 kg

DRUGS (2)
  1. CETIRIZINE [Concomitant]
     Active Substance: CETIRIZINE HYDROCHLORIDE
     Dates: start: 20200313
  2. AMOXICILLIN. [Suspect]
     Active Substance: AMOXICILLIN
     Dosage: 250MG/5ML
     Route: 065
     Dates: start: 20200311

REACTIONS (2)
  - Swelling of eyelid [Recovering/Resolving]
  - Rash [Recovering/Resolving]

NARRATIVE: CASE EVENT DATE: 20200313
